FAERS Safety Report 24283631 (Version 3)
Quarter: 2025Q3

REPORT INFORMATION
  Report Type: Spontaneous
  Country: JP (occurrence: JP)
  Receive Date: 20240904
  Receipt Date: 20250804
  Transmission Date: 20251020
  Serious: Yes (Hospitalization, Other)
  Sender: AMGEN
  Company Number: JP-DSJP-DSJ-2024-142486

PATIENT
  Age: 80 Year
  Sex: Female

DRUGS (2)
  1. DENOSUMAB [Suspect]
     Active Substance: DENOSUMAB
     Indication: Metastases to bone
     Route: 065
  2. ERIBULIN [Concomitant]
     Active Substance: ERIBULIN
     Indication: Breast cancer
     Route: 065

REACTIONS (2)
  - Abscess [Recovered/Resolved]
  - Osteonecrosis of jaw [Unknown]
